FAERS Safety Report 7209871-7 (Version None)
Quarter: 2011Q1

REPORT INFORMATION
  Report Type: 
  Country: None (occurrence: None)
  Receive Date: 20110104
  Receipt Date: 20101231
  Transmission Date: 20110831
  Serious: Yes (Hospitalization)
  Sender: FDA-Public Use
  Company Number: FI-BRISTOL-MYERS SQUIBB COMPANY-15468739

PATIENT
  Age: 19 Year
  Sex: Female

DRUGS (1)
  1. ARIPIPRAZOLE [Suspect]

REACTIONS (1)
  - MANIA [None]
